FAERS Safety Report 10553444 (Version 1)
Quarter: 2014Q4

REPORT INFORMATION
  Report Type: Spontaneous
  Country: DE (occurrence: None)
  Receive Date: 20141028
  Receipt Date: 20141028
  Transmission Date: 20150529
  Serious: Yes (Death, Hospitalization)
  Sender: FDA-Public Use
  Company Number: DE2014GSK004500

PATIENT
  Age: 47 Year
  Sex: Male

DRUGS (5)
  1. ZYPREXA [Suspect]
     Active Substance: OLANZAPINE
     Indication: PRODUCT USED FOR UNKNOWN INDICATION
     Route: 048
     Dates: start: 20131118, end: 20131118
  2. ZALASTA (OLANZAPINE) [Suspect]
     Active Substance: OLANZAPINE
     Indication: PRODUCT USED FOR UNKNOWN INDICATION
     Route: 048
     Dates: start: 20131118, end: 20131118
  3. REBOXETINE [Suspect]
     Active Substance: REBOXETINE
     Indication: PRODUCT USED FOR UNKNOWN INDICATION
     Route: 048
     Dates: start: 20131118, end: 20131118
  4. PAROXETINE HYDROCHLORIDE (PAROXETINE HYDROCHLORIDE) [Suspect]
     Active Substance: PAROXETINE HYDROCHLORIDE
     Indication: PRODUCT USED FOR UNKNOWN INDICATION
     Route: 048
     Dates: start: 20131118, end: 20131118
  5. SOLVEX (BROMHEXINE HYDROCHLORIDE) [Suspect]
     Active Substance: BROMHEXINE HYDROCHLORIDE
     Indication: PRODUCT USED FOR UNKNOWN INDICATION
     Dosage: Z
     Route: 048
     Dates: start: 20131118, end: 20131118

REACTIONS (12)
  - Laceration [None]
  - Sopor [None]
  - Acidosis [None]
  - Completed suicide [None]
  - Tachycardia [None]
  - Injury [None]
  - Somnolence [None]
  - Fall [None]
  - Intentional overdose [None]
  - Confusional state [None]
  - Rhabdomyolysis [None]
  - Cardiovascular insufficiency [None]

NARRATIVE: CASE EVENT DATE: 201311
